FAERS Safety Report 4378211-3 (Version None)
Quarter: 2004Q2

REPORT INFORMATION
  Report Type: 
  Country: None (occurrence: None)
  Receive Date: 20040609
  Receipt Date: 20040520
  Transmission Date: 20050107
  Serious: Yes (Other)
  Sender: FDA-Public Use
  Company Number: USA040568166

PATIENT
  Age: 11 Year
  Sex: Male
  Weight: 36 kg

DRUGS (2)
  1. STRATTERA [Suspect]
     Indication: ATTENTION DEFICIT/HYPERACTIVITY DISORDER
     Dosage: 36 MG DAY
     Dates: start: 20040501
  2. GENOTROPIN [Concomitant]

REACTIONS (4)
  - DIZZINESS [None]
  - PALLOR [None]
  - SOMNOLENCE [None]
  - SYNCOPE [None]
